FAERS Safety Report 4582118-6 (Version None)
Quarter: 2005Q1

REPORT INFORMATION
  Report Type: 
  Country: None (occurrence: None)
  Receive Date: 20050119
  Receipt Date: 20040107
  Transmission Date: 20050727
  Serious: Yes (Hospitalization)
  Sender: FDA-Public Use
  Company Number: A03200400059

PATIENT
  Age: 70 Year
  Sex: Female
  Weight: 99.7913 kg

DRUGS (28)
  1. PLAVIX [Suspect]
     Indication: ANGIOPLASTY
     Dosage: 75 MG QD - ORAL
     Route: 048
     Dates: start: 19980101, end: 20040101
  2. ACETYLSALISILIC ACID [Concomitant]
  3. NICOTINIC ACID [Concomitant]
  4. METOPROLOL SUCCINATE [Concomitant]
  5. LANSOPRAZOLE [Concomitant]
  6. SULFAMETHOXAZOLE + TRIMETHOPRIM [Concomitant]
  7. LISINOPRIL [Concomitant]
  8. AMLODIPINE BESYLATE [Concomitant]
  9. TRIAMTERINE + HCTZ [Concomitant]
  10. DOXEPIN HYDROCHLORIDE [Concomitant]
  11. ZOLPIDEM TARTRATE [Concomitant]
  12. CALCIUM CITRATE [Concomitant]
  13. MAGNESIUM CHELATE [Concomitant]
  14. GLUCOSAMINE + CHONDROITIN FULFATES [Concomitant]
  15. VITAMIN A + D [Concomitant]
  16. OXYBUTYNIN HYDROCHLORIDE [Concomitant]
  17. HYDROXYZINE EMOBONATE [Concomitant]
  18. TRIAMTERENE AND HYDROCHLOROTHIAZIDE [Concomitant]
  19. CONJUGATED ESTROGENS [Concomitant]
  20. DIPHENOXYLATE HCL + ATROPINE SULFATE [Concomitant]
  21. DIFLORASONE DIACETATE [Concomitant]
  22. VITAMIN E [Concomitant]
  23. LACTOBACILLUS ACIDOPHILUS [Concomitant]
  24. LORAZEPAM [Concomitant]
  25. LISINOPRIL [Concomitant]
  26. LEVOTHYROXINE SODIUM [Concomitant]
  27. FLUTICASONE PROPIONATE/SALMETEROL [Concomitant]
  28. ^CHELATION THERAPY^ [Concomitant]

REACTIONS (4)
  - ARTHRALGIA [None]
  - CEREBRAL INFARCTION [None]
  - CONTUSION [None]
  - HIP SWELLING [None]
